FAERS Safety Report 7628529-3 (Version None)
Quarter: 2011Q3

REPORT INFORMATION
  Report Type: 
  Country: None (occurrence: None)
  Receive Date: 20110721
  Receipt Date: 20110721
  Transmission Date: 20111222
  Serious: Yes (Hospitalization, Other)
  Sender: FDA-Public Use
  Company Number: None

PATIENT
  Sex: Female
  Weight: 42.36 kg

DRUGS (2)
  1. REMICADE [Suspect]
     Indication: CROHN'S DISEASE
     Dosage: 210 MG EVERY 3 WKS IV INFUSION (TITRATED) (1020 PM - 1240 PM
     Route: 042
     Dates: start: 20110518
  2. REMICADE [Suspect]
     Indication: CROHN'S DISEASE
     Dosage: 212MG EVERY 8 WEEKS IV INFUSION (TITRATED) (1025 AM - 1150 AM)
     Route: 042
     Dates: start: 20110713

REACTIONS (9)
  - URTICARIA [None]
  - HEADACHE [None]
  - DYSPNOEA [None]
  - AGITATION [None]
  - REFUSAL OF TREATMENT BY PATIENT [None]
  - SKIN REACTION [None]
  - SINUSITIS [None]
  - TACHYCARDIA [None]
  - SKIN DISORDER [None]
